FAERS Safety Report 16946765 (Version 2)
Quarter: 2019Q4

REPORT INFORMATION
  Report Type: Spontaneous
  Country: US (occurrence: US)
  Receive Date: 20191022
  Receipt Date: 20191125
  Transmission Date: 20200122
  Serious: No
  Sender: FDA-Public Use
  Company Number: US-PFIZER INC-2019456365

PATIENT
  Age: 65 Year
  Sex: Male

DRUGS (1)
  1. NIVESTYM [Suspect]
     Active Substance: FILGRASTIM-AAFI
     Dosage: 300 UG, UNK

REACTIONS (2)
  - Laboratory test abnormal [Unknown]
  - White blood cell count decreased [Recovered/Resolved]
